FAERS Safety Report 7096892-0 (Version None)
Quarter: 2010Q4

REPORT INFORMATION
  Report Type: 
  Country: None (occurrence: None)
  Receive Date: 20101111
  Receipt Date: 20101103
  Transmission Date: 20110411
  Serious: Yes (Hospitalization)
  Sender: FDA-Public Use
  Company Number: JP-ABBOTT-10P-087-0645386-00

PATIENT
  Age: 63 Year
  Sex: Male

DRUGS (8)
  1. FENOFIBRATE [Suspect]
     Indication: HYPERLIPIDAEMIA
     Route: 048
     Dates: end: 20080701
  2. LOXOPROFEN SODIUM [Suspect]
     Indication: HERPES ZOSTER
     Route: 048
     Dates: end: 20080701
  3. ACYCLOVIR SODIUM [Suspect]
     Indication: HERPES ZOSTER
     Route: 050
     Dates: start: 20080701, end: 20080701
  4. VALACICLOVIR [Suspect]
     Indication: HERPES ZOSTER
     Route: 048
     Dates: start: 20080701, end: 20080701
  5. BENZBROMARONE [Suspect]
     Indication: PRODUCT USED FOR UNKNOWN INDICATION
     Route: 048
     Dates: end: 20080701
  6. POTASSIUM CITRATE [Concomitant]
     Indication: PRODUCT USED FOR UNKNOWN INDICATION
     Route: 065
     Dates: end: 20080701
  7. PROBUCOL [Concomitant]
     Indication: PRODUCT USED FOR UNKNOWN INDICATION
     Route: 065
     Dates: end: 20080701
  8. PRAVASTATIN SODIUM [Concomitant]
     Indication: PRODUCT USED FOR UNKNOWN INDICATION
     Route: 065
     Dates: end: 20080701

REACTIONS (2)
  - HERPES ZOSTER [None]
  - RENAL FAILURE [None]
